FAERS Safety Report 9267528 (Version 2)
Quarter: 2013Q2

REPORT INFORMATION
  Report Type: Report from Study
  Country: US (occurrence: US)
  Receive Date: 20130502
  Receipt Date: 20130508
  Transmission Date: 20140414
  Serious: Yes (Other)
  Sender: FDA-Public Use
  Company Number: US-PFIZER INC-2013135790

PATIENT
  Age: 65 Year
  Sex: Female

DRUGS (8)
  1. CARBOPLATIN [Suspect]
     Indication: OVARIAN CANCER RECURRENT
     Dosage: UNK
     Route: 065
  2. PACLITAXEL [Suspect]
     Indication: OVARIAN CANCER RECURRENT
     Dosage: UNK
  3. CISPLATIN [Suspect]
     Indication: OVARIAN CANCER RECURRENT
     Dosage: UNK
     Route: 033
  4. GEMCITABINE [Suspect]
     Indication: OVARIAN CANCER RECURRENT
     Dosage: UNK
     Route: 065
  5. OXALIPLATIN [Suspect]
     Indication: OVARIAN CANCER RECURRENT
     Dosage: UNK
     Route: 065
  6. LIPOSOMAL FORMULATION OF DOXORUBICIN [Suspect]
     Indication: OVARIAN CANCER RECURRENT
     Dosage: UNK
     Route: 065
  7. BEVACIZUMAB [Suspect]
     Indication: OVARIAN CANCER RECURRENT
     Dosage: UNK
     Route: 065
  8. PLACEBO [Suspect]
     Indication: OVARIAN CANCER RECURRENT
     Dosage: UNK

REACTIONS (4)
  - Renal failure chronic [Not Recovered/Not Resolved]
  - Hypertension [None]
  - Ovarian cancer recurrent [None]
  - Malignant neoplasm progression [None]
